FAERS Safety Report 14741090 (Version 1)
Quarter: 2018Q2

REPORT INFORMATION
  Report Type: Report from Study
  Country: US (occurrence: US)
  Receive Date: 20180410
  Receipt Date: 20180410
  Transmission Date: 20180711
  Serious: Yes (Hospitalization)
  Sender: FDA-Public Use
  Company Number: US-ROCHE-2096133

PATIENT
  Age: 77 Year
  Sex: Female

DRUGS (23)
  1. SODIUM CHLORIDE. [Concomitant]
     Active Substance: SODIUM CHLORIDE
     Dosage: SUBSEQUENT DOSE : 250 ML , 30 ML (AS REQUIRED)
     Route: 042
  2. BENADRYL [Concomitant]
     Active Substance: DIPHENHYDRAMINE HYDROCHLORIDE
     Route: 042
  3. LASIX [Concomitant]
     Active Substance: FUROSEMIDE
  4. LISINOPRIL. [Concomitant]
     Active Substance: LISINOPRIL
  5. POTASSIUM CHLORIDE. [Concomitant]
     Active Substance: POTASSIUM CHLORIDE
     Route: 042
  6. DAYPRO [Concomitant]
     Active Substance: OXAPROZIN
  7. TRAMADOL. [Concomitant]
     Active Substance: TRAMADOL
  8. OBINUTUZUMAB. [Suspect]
     Active Substance: OBINUTUZUMAB
     Indication: LYMPHOMA
     Dosage: DAY 15 (CYCLE 1).
     Route: 042
  9. ASPIRIN. [Concomitant]
     Active Substance: ASPIRIN
  10. METFORMIN [Concomitant]
     Active Substance: METFORMIN HYDROCHLORIDE
     Route: 065
  11. ONDANSETRON [Concomitant]
     Active Substance: ONDANSETRON
  12. ENOXAPARIN [Concomitant]
     Active Substance: ENOXAPARIN
  13. AMOXICILLIN/CLAVULANATE [Concomitant]
     Active Substance: AMOXICILLIN\CLAVULANATE POTASSIUM
  14. IOHEXOL [Concomitant]
     Active Substance: IOHEXOL
     Indication: RASH
  15. ATORVASTATIN [Concomitant]
     Active Substance: ATORVASTATIN
  16. LIDOCAINE. [Concomitant]
     Active Substance: LIDOCAINE
  17. PRILOCAINE [Concomitant]
     Active Substance: PRILOCAINE
  18. METOPROLOL TARTRATE. [Concomitant]
     Active Substance: METOPROLOL TARTRATE
  19. OXAPROZIN. [Concomitant]
     Active Substance: OXAPROZIN
  20. LENALIDOMIDE [Suspect]
     Active Substance: LENALIDOMIDE
     Indication: LYMPHOMA
     Dosage: DAY 15 (CYCLE 1).
     Route: 065
  21. FUROSEMIDE. [Concomitant]
     Active Substance: FUROSEMIDE
  22. ALBUTEROL. [Concomitant]
     Active Substance: ALBUTEROL
  23. IPRATROPIUM [Concomitant]
     Active Substance: IPRATROPIUM

REACTIONS (2)
  - Cardiac failure [Unknown]
  - Lung infection [Unknown]

NARRATIVE: CASE EVENT DATE: 20180322
